FAERS Safety Report 17031280 (Version 1)
Quarter: 2019Q4

REPORT INFORMATION
  Report Type: Spontaneous
  Country: US (occurrence: US)
  Receive Date: 20191113
  Receipt Date: 20191113
  Transmission Date: 20200122
  Serious: Yes (Disabling)
  Sender: FDA-Public Use
  Company Number: None

PATIENT
  Age: 37 Year
  Sex: Male
  Weight: 81 kg

DRUGS (8)
  1. COQ10 [Concomitant]
     Active Substance: UBIDECARENONE
  2. LEVOFLOXACIN. [Suspect]
     Active Substance: LEVOFLOXACIN
     Indication: TESTICULAR PAIN
     Dosage: ?          QUANTITY:1 TABLET(S);?
     Route: 048
     Dates: start: 20190415, end: 20190419
  3. MEN^S ONE DAILY MULTIVITAMIN [Concomitant]
  4. FOLIC ACID. [Concomitant]
     Active Substance: FOLIC ACID
  5. FISH OIL [Concomitant]
     Active Substance: FISH OIL
  6. MAGNESIUM [Concomitant]
     Active Substance: MAGNESIUM
  7. BIOTIN [Concomitant]
     Active Substance: BIOTIN
  8. BENFOTIAMINE [Concomitant]
     Active Substance: BENFOTIAMINE

REACTIONS (12)
  - Depression [None]
  - Hypoaesthesia [None]
  - Vitreous floaters [None]
  - Tinnitus [None]
  - Anxiety [None]
  - Hallucination [None]
  - Pain [None]
  - Paraesthesia [None]
  - Neuralgia [None]
  - Hypoaesthesia oral [None]
  - Burning sensation [None]
  - Choking sensation [None]

NARRATIVE: CASE EVENT DATE: 20190420
